FAERS Safety Report 15889573 (Version 3)
Quarter: 2020Q2

REPORT INFORMATION
  Report Type: Spontaneous
  Country: US (occurrence: US)
  Receive Date: 20190130
  Receipt Date: 20200427
  Transmission Date: 20200713
  Serious: Yes (Death, Other)
  Sender: FDA-Public Use
  Company Number: US-JNJFOC-20190130742

PATIENT
  Sex: Male

DRUGS (1)
  1. ERLEADA [Suspect]
     Active Substance: APALUTAMIDE
     Indication: PRODUCT USED FOR UNKNOWN INDICATION
     Dosage: 60 MILLIGRAM STRENGTH TABLET
     Route: 048

REACTIONS (4)
  - Death [Fatal]
  - Hypotension [Not Recovered/Not Resolved]
  - Dementia [Unknown]
  - Weight decreased [Not Recovered/Not Resolved]
